FAERS Safety Report 19581990 (Version 2)
Quarter: 2021Q3

REPORT INFORMATION
  Report Type: Spontaneous
  Country: JP (occurrence: JP)
  Receive Date: 20210720
  Receipt Date: 20210826
  Transmission Date: 20211014
  Serious: Yes (Hospitalization, Other)
  Sender: FDA-Public Use
  Company Number: JP-ASTELLAS-2020JP015792

PATIENT
  Age: 86 Year
  Sex: Female

DRUGS (3)
  1. XOSPATA [Suspect]
     Active Substance: GILTERITINIB
     Indication: ACUTE MYELOID LEUKAEMIA
     Route: 048
     Dates: start: 20200915, end: 20201007
  2. XOSPATA [Suspect]
     Active Substance: GILTERITINIB
     Route: 048
     Dates: start: 20201021, end: 20201104
  3. XOSPATA [Suspect]
     Active Substance: GILTERITINIB
     Dosage: 40 MG, ONCE DAILY, IN THE MORNING
     Route: 048
     Dates: start: 20201118

REACTIONS (2)
  - Electrocardiogram QT prolonged [Recovering/Resolving]
  - Blast cell count increased [Not Recovered/Not Resolved]

NARRATIVE: CASE EVENT DATE: 20201007
